APPROVED DRUG PRODUCT: BUTALBITAL, ACETAMINOPHEN AND CAFFEINE
Active Ingredient: ACETAMINOPHEN; BUTALBITAL; CAFFEINE
Strength: 325MG;50MG;40MG
Dosage Form/Route: CAPSULE;ORAL
Application: A089007 | Product #001 | TE Code: AA
Applicant: DR REDDYS LABORATORIES SA
Approved: Mar 17, 1986 | RLD: No | RS: Yes | Type: RX